FAERS Safety Report 9460533 (Version 1)
Quarter: 2013Q3

REPORT INFORMATION
  Report Type: Spontaneous
  Country: DK (occurrence: DK)
  Receive Date: 20130815
  Receipt Date: 20130815
  Transmission Date: 20140515
  Serious: Yes (Hospitalization)
  Sender: FDA-Public Use
  Company Number: DK-ACTAVIS-2013-14597

PATIENT
  Age: 82 Year
  Sex: Female

DRUGS (3)
  1. OXAZEPAM (UNKNOWN) [Suspect]
     Indication: ANXIETY
     Dosage: 220 MG, UNKNOWN
     Route: 048
  2. SERETIDE DISCUS [Concomitant]
     Indication: CHRONIC OBSTRUCTIVE PULMONARY DISEASE
     Dosage: 50+100 MIKROG/DISK
  3. SPIRIVA [Concomitant]
     Indication: CHRONIC OBSTRUCTIVE PULMONARY DISEASE
     Dosage: 2.5 MCG
     Route: 065

REACTIONS (3)
  - Presyncope [Unknown]
  - Overdose [Unknown]
  - Fall [Unknown]
